FAERS Safety Report 24593223 (Version 1)
Quarter: 2024Q4

REPORT INFORMATION
  Report Type: Spontaneous
  Country: US (occurrence: US)
  Receive Date: 20241108
  Receipt Date: 20241108
  Transmission Date: 20250115
  Serious: No
  Sender: BRISTOL-MYERS SQUIBB COMPANY
  Company Number: US-BRISTOL-MYERS SQUIBB COMPANY-2024-174427

PATIENT
  Age: 74 Year
  Sex: Male
  Weight: 110.22 kg

DRUGS (1)
  1. ELIQUIS [Suspect]
     Active Substance: APIXABAN
     Indication: Atrial fibrillation
     Dosage: DOSE : (1) TABLET;     FREQ : EVERY (12) HOURS
     Route: 048
     Dates: start: 20240927, end: 20240927

REACTIONS (1)
  - Treatment noncompliance [Unknown]
